FAERS Safety Report 8506896-6 (Version None)
Quarter: 2012Q3

REPORT INFORMATION
  Report Type: 
  Country: None (occurrence: None)
  Receive Date: 20120712
  Receipt Date: 20120703
  Transmission Date: 20120928
  Serious: No
  Sender: FDA-Public Use
  Company Number: AE-ASTRAZENECA-2012SE45324

PATIENT
  Age: 70 Year
  Sex: Female
  Weight: 65.8 kg

DRUGS (9)
  1. ZESTRIL [Suspect]
     Indication: BLOOD PRESSURE
     Route: 048
  2. PREVACID [Concomitant]
  3. BONIVA [Concomitant]
     Indication: OSTEOPOROSIS
  4. NEXIUM [Suspect]
     Indication: HIATUS HERNIA
     Route: 048
     Dates: start: 20020101
  5. NEXIUM [Suspect]
     Indication: GASTROOESOPHAGEAL REFLUX DISEASE
     Route: 048
     Dates: start: 20020101
  6. FOSAMAX [Concomitant]
     Indication: OSTEOPOROSIS
  7. SYNTHROID [Concomitant]
     Indication: THYROID DISORDER
  8. CLONAZEPAM [Concomitant]
     Indication: SLEEP DISORDER
  9. ASPIRIN [Concomitant]

REACTIONS (2)
  - INTENTIONAL DRUG MISUSE [None]
  - GASTROOESOPHAGEAL REFLUX DISEASE [None]
